FAERS Safety Report 9513802 (Version 1)
Quarter: 2013Q3

REPORT INFORMATION
  Report Type: Spontaneous
  Country: CN (occurrence: CN)
  Receive Date: 20130910
  Receipt Date: 20130910
  Transmission Date: 20140515
  Serious: Yes (Other)
  Sender: FDA-Public Use
  Company Number: CN-ROCHE-1271191

PATIENT
  Age: 30 Year
  Sex: Male
  Weight: 55 kg

DRUGS (2)
  1. CAPECITABINE [Suspect]
     Indication: METASTATIC NEOPLASM
     Route: 048
     Dates: start: 20111115, end: 20111119
  2. IRINOTECAN HYDROCHLORIDE [Suspect]
     Indication: METASTATIC NEOPLASM
     Route: 041
     Dates: start: 20111115, end: 20111115

REACTIONS (1)
  - Intestinal obstruction [Recovering/Resolving]
